FAERS Safety Report 9135426 (Version 2)
Quarter: 2013Q4

REPORT INFORMATION
  Report Type: Spontaneous
  Country: US (occurrence: US)
  Receive Date: 20130304
  Receipt Date: 20131203
  Transmission Date: 20140711
  Serious: Yes (Hospitalization, Other)
  Sender: FDA-Public Use
  Company Number: US-PFIZER INC-2013074594

PATIENT
  Age: 79 Year
  Sex: Female
  Weight: 97.51 kg

DRUGS (7)
  1. TIKOSYN [Suspect]
     Indication: ATRIAL FIBRILLATION
     Dosage: 500 UG, 2X/DAY
     Route: 048
  2. TIKOSYN [Suspect]
     Dosage: 250 UG, 2X/DAY
     Route: 048
     Dates: start: 2012
  3. LIPITOR [Suspect]
     Indication: BLOOD CHOLESTEROL INCREASED
     Dosage: UNK
     Dates: end: 2012
  4. ATORVASTATIN CALCIUM [Suspect]
     Indication: BLOOD CHOLESTEROL INCREASED
     Dosage: 40 MG DAILY
     Dates: start: 2012
  5. AMLODIPINE BESILATE, BENAZEPRIL HCL [Suspect]
     Indication: HYPERTENSION
     Dosage: 10/20 MG DAILY IN MORNING
     Route: 048
  6. COUMADIN [Concomitant]
     Indication: CEREBROVASCULAR ACCIDENT PROPHYLAXIS
     Dosage: 2.5 MG, 1X/DAILY
  7. COUMADIN [Concomitant]
     Indication: ATRIAL FIBRILLATION
     Dosage: 2.5MG ON SUN, 3.75MG ON MON, TUE AND WED, 1MG ON THU AND 3.75MG ON FRI AND SAT, 1X/DAY

REACTIONS (4)
  - Hip fracture [Recovering/Resolving]
  - Blood pressure decreased [Unknown]
  - Pain [Unknown]
  - Vitamin D abnormal [Unknown]
